FAERS Safety Report 23354017 (Version 1)
Quarter: 2024Q1

REPORT INFORMATION
  Report Type: Spontaneous
  Country: US (occurrence: None)
  Receive Date: 20240101
  Receipt Date: 20240101
  Transmission Date: 20240409
  Serious: No
  Sender: FDA-Public Use
  Company Number: 2023A288956

PATIENT
  Age: 14530 Day

DRUGS (1)
  1. BYDUREON BCISE [Suspect]
     Active Substance: EXENATIDE
     Route: 058
     Dates: start: 20231213

REACTIONS (6)
  - Injection site haemorrhage [Unknown]
  - Injection site pruritus [Recovered/Resolved]
  - Injection site mass [Not Recovered/Not Resolved]
  - Injury associated with device [Unknown]
  - Incorrect dose administered by device [Unknown]
  - Device leakage [Unknown]

NARRATIVE: CASE EVENT DATE: 20231213
